FAERS Safety Report 6438056-7 (Version None)
Quarter: 2009Q4

REPORT INFORMATION
  Report Type: 
  Country: None (occurrence: None)
  Receive Date: 20091112
  Receipt Date: 20091110
  Transmission Date: 20100525
  Serious: Yes (Death, Hospitalization)
  Sender: FDA-Public Use
  Company Number: HU-BRISTOL-MYERS SQUIBB COMPANY-14742209

PATIENT
  Age: 67 Year
  Sex: Male
  Weight: 50 kg

DRUGS (8)
  1. PACLITAXEL [Suspect]
     Indication: NON-SMALL CELL LUNG CANCER
     Dosage: CYCLIC
     Route: 042
     Dates: start: 20090701, end: 20090708
  2. CARBOPLATIN [Suspect]
     Indication: NON-SMALL CELL LUNG CANCER
     Dosage: 1DF+6AUC,CYCLIC
     Route: 042
     Dates: start: 20090701, end: 20090708
  3. SYMBICORT [Concomitant]
     Dates: start: 19960101, end: 20090724
  4. BERODUAL [Concomitant]
     Dates: start: 19960101, end: 20090724
  5. THEOSPIREX [Concomitant]
     Dates: start: 19960101, end: 20090724
  6. CONTRAMAL [Concomitant]
     Dates: start: 20090501, end: 20090724
  7. ACETYLCYSTEINE [Concomitant]
     Dates: start: 19960101, end: 20090724
  8. PANCREATIN [Concomitant]
     Dates: end: 20090724

REACTIONS (2)
  - DEHYDRATION [None]
  - GRANULOCYTOPENIA [None]
